FAERS Safety Report 9638313 (Version 1)
Quarter: 2013Q4

REPORT INFORMATION
  Report Type: Spontaneous
  Country: US (occurrence: None)
  Receive Date: 20131021
  Receipt Date: 20131021
  Transmission Date: 20140711
  Serious: No
  Sender: FDA-Public Use
  Company Number: None

PATIENT
  Sex: Female
  Weight: 26 kg

DRUGS (2)
  1. ELITEK [Suspect]
     Indication: HYPERURICAEMIA
     Dosage: 5.2 MG, ONCE, IVPB
     Dates: start: 20131015
  2. ELITEK [Suspect]
     Indication: TUMOUR LYSIS SYNDROME
     Dosage: 5.2 MG, ONCE, IVPB
     Dates: start: 20131015

REACTIONS (2)
  - Methaemoglobinaemia [None]
  - Respiratory failure [None]
